FAERS Safety Report 25731136 (Version 1)
Quarter: 2025Q3

REPORT INFORMATION
  Report Type: Spontaneous
  Country: EU (occurrence: EU)
  Receive Date: 20250827
  Receipt Date: 20250827
  Transmission Date: 20251021
  Serious: Yes (Life-Threatening)
  Sender: NOVARTIS
  Company Number: None

PATIENT
  Age: 3 Year
  Sex: Male
  Weight: 13.8 kg

DRUGS (3)
  1. EXJADE [Suspect]
     Active Substance: DEFERASIROX
     Indication: Thalassaemia beta
     Dosage: 180 MG, QD
     Route: 048
     Dates: start: 202408
  2. EXJADE [Suspect]
     Active Substance: DEFERASIROX
     Dosage: 90 MG, QD
     Route: 048
     Dates: start: 202408
  3. DESFERAL [Concomitant]
     Active Substance: DEFEROXAMINE MESYLATE
     Indication: Thalassaemia beta
     Dosage: 1250 MG, QW,250 MG 5 JOURS SUR 7
     Route: 058
     Dates: start: 20250701

REACTIONS (4)
  - Hyperammonaemic encephalopathy [Recovering/Resolving]
  - Fanconi syndrome acquired [Recovering/Resolving]
  - Metabolic acidosis [Recovering/Resolving]
  - Hepatic failure [Recovering/Resolving]

NARRATIVE: CASE EVENT DATE: 20250816
